FAERS Safety Report 4672473-0 (Version None)
Quarter: 2005Q2

REPORT INFORMATION
  Report Type: 
  Country: None (occurrence: None)
  Receive Date: 20050524
  Receipt Date: 20050330
  Transmission Date: 20051028
  Serious: Yes (Other)
  Sender: FDA-Public Use
  Company Number: US-BOEHRINGER INGELHEIM PHARMACEUTICALS, INC.-2005-BP-05203BP

PATIENT
  Age: 57 Year
  Sex: Male
  Weight: 72.6 kg

DRUGS (3)
  1. FLOMAX [Suspect]
     Indication: POLLAKIURIA
     Route: 048
     Dates: start: 20050315, end: 20050315
  2. FLOMAX [Suspect]
     Indication: NOCTURIA
  3. FLOMAX [Suspect]
     Indication: URINE FLOW DECREASED

REACTIONS (2)
  - ANAPHYLACTIC REACTION [None]
  - LOCALISED OEDEMA [None]
